FAERS Safety Report 18064749 (Version 1)
Quarter: 2020Q3

REPORT INFORMATION
  Report Type: Spontaneous
  Country: CL (occurrence: CL)
  Receive Date: 20200724
  Receipt Date: 20200724
  Transmission Date: 20201103
  Serious: Yes (Other)
  Sender: FDA-Public Use
  Company Number: CL-STRIDES ARCOLAB LIMITED-2020SP008341

PATIENT
  Age: 79 Year
  Sex: Female

DRUGS (1)
  1. METRONIDAZOLE. [Suspect]
     Active Substance: METRONIDAZOLE
     Indication: INFECTIVE AORTITIS
     Dosage: UNK
     Route: 065

REACTIONS (12)
  - Dysmetria [Unknown]
  - Dysstasia [Unknown]
  - Cerebellar ataxia [Unknown]
  - Dysdiadochokinesis [Unknown]
  - Pain [Unknown]
  - Gait disturbance [Unknown]
  - Paraesthesia [Unknown]
  - Vertigo [Unknown]
  - Dysarthria [Unknown]
  - Neurotoxicity [Unknown]
  - Cerebellar syndrome [Recovered/Resolved]
  - Disorientation [Unknown]
